FAERS Safety Report 6867120 (Version 4)
Quarter: 2013Q3

REPORT INFORMATION
  Report Type: Spontaneous
  Country: FR (occurrence: FR)
  Receive Date: 20081226
  Receipt Date: 20130916
  Transmission Date: 20140515
  Serious: Yes (Other)
  Sender: FDA-Public Use
  Company Number: PHHY2008FR32635

PATIENT
  Age: 72 Year
  Sex: Female
  Weight: 67 kg

DRUGS (8)
  1. ACLASTA [Suspect]
     Indication: OSTEOPOROSIS
     Dosage: 5 MG, UNK
     Route: 042
     Dates: start: 20081106
  2. PLAVIX [Concomitant]
     Indication: CAROTID ARTERY STENT INSERTION
     Dosage: 1 DF DAILY
     Dates: start: 2005
  3. AMLOR [Concomitant]
     Indication: HYPERTENSION
     Dosage: 10 MG/DAY
     Dates: start: 2005
  4. TAHOR [Concomitant]
     Indication: CAROTID ARTERY STENT INSERTION
     Dosage: 10 MG/DAY
     Dates: start: 2006
  5. KARDEGIC [Concomitant]
     Indication: CAROTID ARTERY STENT INSERTION
     Dosage: 75 MG/DAY
     Dates: start: 2005
  6. LESCOL [Concomitant]
     Dosage: UNK
  7. BETASERC [Concomitant]
     Dosage: UNK
  8. ZOLOFT [Concomitant]
     Dosage: UNK

REACTIONS (8)
  - Dysphagia [Recovered/Resolved]
  - Dysarthria [Recovered/Resolved]
  - Pyrexia [Recovered/Resolved]
  - Chills [Recovered/Resolved]
  - Myalgia [Recovered/Resolved]
  - Bone pain [Recovering/Resolving]
  - Arthralgia [Recovered/Resolved]
  - Vomiting [Recovered/Resolved]
